FAERS Safety Report 11503709 (Version 2)
Quarter: 2016Q3

REPORT INFORMATION
  Report Type: Spontaneous
  Country: US (occurrence: US)
  Receive Date: 20150914
  Receipt Date: 20160915
  Transmission Date: 20161109
  Serious: No
  Sender: FDA-Public Use
  Company Number: US-ASTELLAS-2015US027376

PATIENT
  Age: 58 Year
  Sex: Male

DRUGS (1)
  1. XTANDI [Suspect]
     Active Substance: ENZALUTAMIDE
     Indication: PROSTATE CANCER
     Dosage: 160 MG (4 DF), ONCE DAILY
     Route: 048
     Dates: start: 20150701

REACTIONS (6)
  - Restless legs syndrome [Recovering/Resolving]
  - Insomnia [Recovering/Resolving]
  - Thinking abnormal [Unknown]
  - Muscle twitching [Recovered/Resolved]
  - Fatigue [Unknown]
  - Product size issue [Unknown]

NARRATIVE: CASE EVENT DATE: 20150720
